FAERS Safety Report 7558458-5 (Version None)
Quarter: 2011Q2

REPORT INFORMATION
  Report Type: 
  Country: None (occurrence: None)
  Receive Date: 20110620
  Receipt Date: 20110614
  Transmission Date: 20111010
  Serious: Yes (Hospitalization)
  Sender: FDA-Public Use
  Company Number: DE-B.I. PHARMACEUTICALS,INC./RIDGEFIELD-2011-DE-03558DE

PATIENT
  Age: 66 Year
  Sex: Male
  Weight: 88 kg

DRUGS (11)
  1. VOLTAREN [Suspect]
     Indication: PAIN
     Dosage: 2 ANZ
     Route: 048
     Dates: start: 20100921, end: 20101016
  2. OXYGESIC AKUT [Concomitant]
     Indication: PAIN
     Dosage: INTAKE IF REQUIRED
     Route: 048
     Dates: start: 20100921, end: 20101016
  3. PANTOZOL 40 MG [Concomitant]
     Indication: PROPHYLAXIS AGAINST GASTROINTESTINAL ULCER
     Dosage: 40 MG
     Route: 048
     Dates: start: 20100921, end: 20101016
  4. ACETAMINOPHEN [Concomitant]
     Indication: PAIN
     Dosage: 3000 MG
     Route: 048
     Dates: start: 20100921, end: 20101009
  5. PRADAXA [Suspect]
     Dosage: 220 MG
     Route: 048
     Dates: start: 20100921, end: 20101104
  6. CEFUROXIM 1.5G [Concomitant]
     Indication: INFECTION PROPHYLAXIS
     Dosage: 3 ANZ
     Route: 042
     Dates: start: 20100920, end: 20100920
  7. OXYGESIC [Concomitant]
     Indication: PAIN
     Dosage: 2 ANZ
     Route: 048
     Dates: start: 20100922, end: 20101009
  8. DIPIDOLOR [Concomitant]
     Indication: PAIN
     Dosage: 3 ANZ
     Route: 058
     Dates: start: 20100921, end: 20101016
  9. PRADAXA [Suspect]
     Indication: THROMBOSIS PROPHYLAXIS
     Dosage: 110 MG
     Route: 048
     Dates: start: 20100902, end: 20100920
  10. OXYGESIC [Concomitant]
     Dosage: 2 ANZ
     Route: 048
     Dates: start: 20101009, end: 20101016
  11. BIFITERAL SIRUP [Concomitant]
     Indication: CONSTIPATION
     Dosage: IF REQUIRED 1TABLESPOON
     Route: 048
     Dates: start: 20100921, end: 20101016

REACTIONS (1)
  - WOUND SECRETION [None]
